FAERS Safety Report 8738307 (Version 2)
Quarter: 2012Q4

REPORT INFORMATION
  Report Type: 
  Country: US (occurrence: US)
  Receive Date: 20120823
  Receipt Date: 20121221
  Transmission Date: 20130627
  Serious: Yes (Other)
  Sender: FDA-Public Use
  Company Number: US-BAYER-2012-085853

PATIENT
  Age: 15 Year
  Sex: Female
  Weight: 72.56 kg

DRUGS (4)
  1. OCELLA [Suspect]
     Dosage: UNK
     Dates: start: 2009, end: 2011
  2. PROPOXYPHENE NAPSYLATE W/PARACETAMOL [Concomitant]
     Indication: PAIN
     Dosage: 100-650 mg, Q4HR, as needed
     Route: 048
  3. IBUPROFEN [Concomitant]
     Dosage: 600 mg, TID
     Route: 048
  4. EXCEDRIN MIGRAINE [Concomitant]
     Indication: PAIN
     Dosage: 250-250-65 mg, 2 tablets every 6 hours as needed
     Route: 048

REACTIONS (11)
  - Cholecystectomy [None]
  - Cholelithiasis [None]
  - Injury [None]
  - Flatulence [None]
  - Abdominal distension [None]
  - Dyspepsia [None]
  - Constipation [None]
  - Diarrhoea [None]
  - Scar [None]
  - Anxiety [None]
  - Depression [None]
